FAERS Safety Report 14245485 (Version 4)
Quarter: 2018Q2

REPORT INFORMATION
  Report Type: Spontaneous
  Country: DE (occurrence: DE)
  Receive Date: 20171202
  Receipt Date: 20180404
  Transmission Date: 20180711
  Serious: Yes (Death, Hospitalization)
  Sender: FDA-Public Use
  Company Number: DE-ROCHE-2030333

PATIENT
  Sex: Female

DRUGS (5)
  1. DEXAMETHASON [Suspect]
     Active Substance: DEXAMETHASONE
     Route: 065
  2. DEXAMETHASON [Suspect]
     Active Substance: DEXAMETHASONE
     Indication: ILEUS
     Route: 065
     Dates: start: 201708
  3. XELODA [Suspect]
     Active Substance: CAPECITABINE
     Indication: COLON CANCER
     Route: 065
     Dates: start: 201706
  4. AVASTIN [Suspect]
     Active Substance: BEVACIZUMAB
     Indication: COLON CANCER
     Route: 065
     Dates: start: 201707
  5. METHADONE [Suspect]
     Active Substance: METHADONE HYDROCHLORIDE
     Indication: COLON CANCER
     Route: 065
     Dates: start: 20170715

REACTIONS (5)
  - Impaired healing [Fatal]
  - Gastrointestinal motility disorder [Fatal]
  - Ileus [Fatal]
  - Gastrointestinal disorder [Fatal]
  - Intestinal perforation [Fatal]

NARRATIVE: CASE EVENT DATE: 201707
